FAERS Safety Report 6156126-8 (Version None)
Quarter: 2009Q2

REPORT INFORMATION
  Report Type: 
  Country: None (occurrence: None)
  Receive Date: 20090410
  Receipt Date: 20090410
  Transmission Date: 20091009
  Serious: Yes (Hospitalization)
  Sender: FDA-Public Use
  Company Number: None

PATIENT
  Age: 48 Year
  Sex: Male
  Weight: 88 kg

DRUGS (2)
  1. TRAZODONE HCL [Suspect]
     Indication: DEPRESSION
     Dosage: 200 MG HS PO
     Route: 048
     Dates: start: 20090206, end: 20090330
  2. TRAZODONE HCL [Suspect]
     Indication: INSOMNIA
     Dosage: 200 MG HS PO
     Route: 048
     Dates: start: 20090206, end: 20090330

REACTIONS (4)
  - FALL [None]
  - INJURY [None]
  - PRIAPISM [None]
  - TREATMENT FAILURE [None]
